FAERS Safety Report 7371475-3 (Version None)
Quarter: 2011Q1

REPORT INFORMATION
  Report Type: 
  Country: None (occurrence: None)
  Receive Date: 20110322
  Receipt Date: 20110322
  Transmission Date: 20110831
  Serious: Yes (Life-Threatening)
  Sender: FDA-Public Use
  Company Number: None

PATIENT
  Sex: Female
  Weight: 70 kg

DRUGS (2)
  1. METHACHOLINE CHLORIDE [Suspect]
     Indication: DYSPNOEA
     Dosage: 2.5 MG/ML ONE TIME OTHER
     Route: 050
     Dates: start: 20100624, end: 20100624
  2. METHACHOLINE CHLORIDE [Suspect]
     Indication: CHEST DISCOMFORT
     Dosage: 2.5 MG/ML ONE TIME OTHER
     Route: 050
     Dates: start: 20100624, end: 20100624

REACTIONS (3)
  - PARAESTHESIA ORAL [None]
  - PHARYNGEAL OEDEMA [None]
  - DYSPHAGIA [None]
